FAERS Safety Report 6642247-X (Version None)
Quarter: 2010Q1

REPORT INFORMATION
  Report Type: 
  Country: None (occurrence: None)
  Receive Date: 20100319
  Receipt Date: 20100305
  Transmission Date: 20100710
  Serious: Yes (Hospitalization, Other)
  Sender: FDA-Public Use
  Company Number: CA-ABBOTT-10P-028-0630498-00

PATIENT
  Sex: Female
  Weight: 50.848 kg

DRUGS (12)
  1. HUMIRA [Suspect]
     Indication: CROHN'S DISEASE
     Route: 058
     Dates: start: 20080707, end: 20090101
  2. HUMIRA [Suspect]
     Dosage: 160 MG AT WEEK 0, 80 MG AT WEEK 2 THEN 40 MG EVERY 2 WEEKS
     Route: 058
     Dates: start: 20100114
  3. FLAGYL [Suspect]
     Indication: DRUG USE FOR UNKNOWN INDICATION
  4. BUDESONIDE [Concomitant]
     Indication: DRUG USE FOR UNKNOWN INDICATION
     Route: 048
  5. PREMARIN [Concomitant]
     Indication: DRUG USE FOR UNKNOWN INDICATION
     Route: 048
  6. VITAMINS [Concomitant]
     Indication: DRUG USE FOR UNKNOWN INDICATION
     Route: 048
  7. LOSEC [Concomitant]
     Indication: DRUG USE FOR UNKNOWN INDICATION
     Dosage: 40 MG 1 TABLET TWICE IN ONE DAY
  8. VITAMIN D [Concomitant]
     Indication: DRUG USE FOR UNKNOWN INDICATION
     Dosage: 1000 IU 1 TABLET TWICE IN ONE DAY
     Route: 048
  9. CALCIUM [Concomitant]
     Indication: DRUG USE FOR UNKNOWN INDICATION
     Dosage: 600 MG 1 TABLET QD
  10. VITAMIN B-12 [Concomitant]
     Indication: DRUG USE FOR UNKNOWN INDICATION
     Dosage: 1 INJECTION Q WEEKLY
     Route: 058
  11. PLAQUENIL [Concomitant]
     Indication: DRUG USE FOR UNKNOWN INDICATION
     Route: 048
  12. ZOPICLONE [Concomitant]
     Indication: INSOMNIA
     Dosage: ONCE EVERY NIGHT
     Route: 048

REACTIONS (11)
  - ASTHENIA [None]
  - BODY HEIGHT DECREASED [None]
  - BONE DISORDER [None]
  - CROHN'S DISEASE [None]
  - DRUG HYPERSENSITIVITY [None]
  - GASTROINTESTINAL PAIN [None]
  - INSOMNIA [None]
  - LOSS OF CONSCIOUSNESS [None]
  - MALNUTRITION [None]
  - MIGRAINE [None]
  - WEIGHT DECREASED [None]
